FAERS Safety Report 9919603 (Version 2)
Quarter: 2014Q1

REPORT INFORMATION
  Report Type: Spontaneous
  Country: GR (occurrence: GR)
  Receive Date: 20140224
  Receipt Date: 20140224
  Transmission Date: 20141002
  Serious: Yes (Death, Other)
  Sender: FDA-Public Use
  Company Number: GR-CELGENEUS-066-21880-13012677

PATIENT
  Sex: Female

DRUGS (3)
  1. REVLIMID [Suspect]
     Indication: PLASMA CELL MYELOMA
     Route: 048
     Dates: start: 20111109
  2. REVLIMID [Suspect]
     Route: 048
     Dates: start: 20121217
  3. REVLIMID [Suspect]
     Route: 048
     Dates: start: 20130115

REACTIONS (2)
  - Death [Fatal]
  - Bone marrow failure [Unknown]
